FAERS Safety Report 5635733-2 (Version None)
Quarter: 2008Q1

REPORT INFORMATION
  Report Type: 
  Country: None (occurrence: None)
  Receive Date: 20080220
  Receipt Date: 20080212
  Transmission Date: 20080703
  Serious: Yes (Other)
  Sender: FDA-Public Use
  Company Number: 2008AP000442

PATIENT
  Age: 33 Year
  Sex: Female

DRUGS (1)
  1. CARBAMAZEPINE [Suspect]
     Indication: EPILEPSY
     Dosage: 400 MG; TAB; PO; TID; 600 MG; TAB; PO; TID
     Route: 048
     Dates: start: 19920101

REACTIONS (2)
  - DISTURBANCE IN ATTENTION [None]
  - LOSS OF LIBIDO [None]
